FAERS Safety Report 12074014 (Version 1)
Quarter: 2016Q1

REPORT INFORMATION
  Report Type: Spontaneous
  Country: US (occurrence: US)
  Receive Date: 20160212
  Receipt Date: 20160212
  Transmission Date: 20160526
  Serious: Yes (Death)
  Sender: FDA-Public Use
  Company Number: US-PERRIGO-16US001340

PATIENT
  Age: 38 Year
  Sex: Female

DRUGS (7)
  1. PREGABALIN. [Suspect]
     Active Substance: PREGABALIN
     Indication: COMPLETED SUICIDE
     Dosage: UNK
     Route: 048
  2. FLUOXETINE [Suspect]
     Active Substance: FLUOXETINE HYDROCHLORIDE
     Indication: COMPLETED SUICIDE
     Dosage: UNK
     Route: 048
  3. QUETIAPINE [Suspect]
     Active Substance: QUETIAPINE
     Indication: COMPLETED SUICIDE
     Dosage: UNK
     Route: 048
  4. PSEUDOEPHEDRINE HYDROCHLORIDE  12 HOUR 120 MG 054 [Suspect]
     Active Substance: UNSPECIFIED INGREDIENT
     Indication: COMPLETED SUICIDE
     Dosage: UNK
     Route: 048
  5. VENLAFAXINE [Suspect]
     Active Substance: VENLAFAXINE HYDROCHLORIDE
     Indication: COMPLETED SUICIDE
     Dosage: UNK
     Route: 048
  6. DEXTROMETHORPHAN [Suspect]
     Active Substance: DEXTROMETHORPHAN
     Indication: COMPLETED SUICIDE
     Dosage: UNK
     Route: 048
  7. TOPIRAMATE. [Suspect]
     Active Substance: TOPIRAMATE
     Indication: COMPLETED SUICIDE
     Dosage: UNK
     Route: 048

REACTIONS (1)
  - Death [Fatal]
